FAERS Safety Report 11544252 (Version 1)
Quarter: 2015Q3

REPORT INFORMATION
  Report Type: Spontaneous
  Country: ID (occurrence: None)
  Receive Date: 20150923
  Receipt Date: 20150923
  Transmission Date: 20151125
  Serious: Yes (Death, Life-Threatening, Hospitalization, Disabling)
  Sender: FDA-Public Use
  Company Number: None

PATIENT
  Age: 83 Year
  Sex: Female
  Weight: 50 kg

DRUGS (5)
  1. NIFEDIPINE (ADALAT) [Concomitant]
  2. ATENOLOL (TENORMIN) [Concomitant]
  3. CELEBREX [Suspect]
     Active Substance: CELECOXIB
     Indication: PAIN
     Route: 048
     Dates: start: 20150227, end: 20150305
  4. ZIMOR (LOSEC) [Concomitant]
  5. VITAMIN D [Concomitant]
     Active Substance: CHOLECALCIFEROL

REACTIONS (5)
  - Abdominal pain upper [None]
  - Somnolence [None]
  - Abasia [None]
  - Cardiac arrest [None]
  - Haematemesis [None]

NARRATIVE: CASE EVENT DATE: 20150308
